FAERS Safety Report 4612557-6 (Version None)
Quarter: 2005Q1

REPORT INFORMATION
  Report Type: 
  Country: None (occurrence: None)
  Receive Date: 20050316
  Receipt Date: 20050228
  Transmission Date: 20050727
  Serious: Yes (Death, Hospitalization)
  Sender: FDA-Public Use
  Company Number: EM2004-0546

PATIENT
  Age: 43 Year
  Sex: Male

DRUGS (4)
  1. PROLEUKIN [Suspect]
     Indication: NEOPLASM MALIGNANT
     Dosage: 5
     Dates: start: 19980203, end: 19980203
  2. INTERFERON ALFA-2B INTERFE [Suspect]
     Indication: NEOPLASM MALIGNANT
     Dosage: 5
     Dates: start: 19980203
  3. ACETAMINOPHEN [Concomitant]
  4. DARVOCET [Concomitant]

REACTIONS (19)
  - ACUTE RESPIRATORY DISTRESS SYNDROME [None]
  - AGITATION [None]
  - ANOREXIA [None]
  - ARRHYTHMIA SUPRAVENTRICULAR [None]
  - BLOOD UREA INCREASED [None]
  - CARDIAC FAILURE CONGESTIVE [None]
  - CHILLS [None]
  - DISEASE PROGRESSION [None]
  - DYSPNOEA [None]
  - FATIGUE [None]
  - HAEMATOCRIT DECREASED [None]
  - HYPOTENSION [None]
  - MEDIASTINAL DISORDER [None]
  - METASTASES TO LUNG [None]
  - PLEURAL EFFUSION [None]
  - PULMONARY OEDEMA [None]
  - PYREXIA [None]
  - RESPIRATORY FAILURE [None]
  - RESTLESSNESS [None]
